FAERS Safety Report 13362495 (Version 1)
Quarter: 2017Q1

REPORT INFORMATION
  Report Type: Spontaneous
  Country: US (occurrence: US)
  Receive Date: 20170323
  Receipt Date: 20170323
  Transmission Date: 20170429
  Serious: No
  Sender: FDA-Public Use
  Company Number: US-PFIZER INC-2016551826

PATIENT
  Age: 22 Year
  Sex: Male
  Weight: 103.8 kg

DRUGS (2)
  1. LYRICA [Suspect]
     Active Substance: PREGABALIN
     Dosage: WHEN HE NEEDS IT HE TAKES IT, OTHERWISE HE WAS NOT TAKING IT EVERY DAY
  2. LYRICA [Suspect]
     Active Substance: PREGABALIN
     Indication: NERVE INJURY
     Dosage: 75 MG, 2X/DAY
     Route: 048
     Dates: start: 20161027

REACTIONS (2)
  - Intentional product misuse [Unknown]
  - Peripheral swelling [Recovering/Resolving]
